FAERS Safety Report 15494041 (Version 1)
Quarter: 2018Q4

REPORT INFORMATION
  Report Type: Spontaneous
  Country: FR (occurrence: FR)
  Receive Date: 20181012
  Receipt Date: 20181012
  Transmission Date: 20190205
  Serious: Yes (Hospitalization)
  Sender: FDA-Public Use
  Company Number: FR-SA-2018SA278444

PATIENT
  Age: 56 Year
  Sex: Male
  Weight: 91 kg

DRUGS (19)
  1. LEVOFLOXACIN. [Suspect]
     Active Substance: LEVOFLOXACIN
     Indication: LEGIONELLA INFECTION
     Route: 042
     Dates: start: 20180825
  2. OXAZEPAM. [Suspect]
     Active Substance: OXAZEPAM
     Indication: DELIRIUM TREMENS
     Route: 045
     Dates: start: 20180827
  3. BRICANYL [Concomitant]
     Active Substance: TERBUTALINE SULFATE
  4. OLIMEL [Concomitant]
     Active Substance: AMINO ACIDS\DEXTROSE\SOYBEAN OIL
  5. HEPARIN SODIUM. [Suspect]
     Active Substance: HEPARIN SODIUM
     Indication: PROPHYLAXIS
     Route: 042
     Dates: start: 20180827
  6. TRANXENE [Suspect]
     Active Substance: CLORAZEPATE DIPOTASSIUM
     Indication: PRODUCT USED FOR UNKNOWN INDICATION
     Dosage: 20 MG, Q8H
     Route: 045
     Dates: start: 20180829
  7. NICOTINE. [Suspect]
     Active Substance: NICOTINE
     Indication: EX-TOBACCO USER
     Route: 062
     Dates: start: 20180827
  8. EUPRESSYL [URAPIDIL] [Suspect]
     Active Substance: URAPIDIL
     Indication: PRODUCT USED FOR UNKNOWN INDICATION
     Route: 042
     Dates: start: 20180831
  9. OMEPRAZOLE. [Suspect]
     Active Substance: OMEPRAZOLE
     Indication: PROPHYLAXIS
     Route: 042
     Dates: start: 20180825
  10. LINEZOLID. [Suspect]
     Active Substance: LINEZOLID
     Indication: LEGIONELLA INFECTION
     Route: 042
     Dates: start: 20180831
  11. NORMACOL [CALENDULA OFFICINALIS;RHAMNUS FRANGULA] [Concomitant]
  12. DUPHALAC [Concomitant]
     Active Substance: LACTULOSE
  13. PROPOFOL. [Suspect]
     Active Substance: PROPOFOL
     Indication: SEDATION
     Route: 042
     Dates: start: 20180825
  14. CATAPRESSAN [CLONIDINE HYDROCHLORIDE] [Suspect]
     Active Substance: CLONIDINE HYDROCHLORIDE
     Indication: SEDATION
     Dosage: UNK
     Route: 042
     Dates: start: 20180829
  15. HALDOL [Suspect]
     Active Substance: HALOPERIDOL
     Indication: AGITATION
     Route: 042
     Dates: start: 20180829, end: 20180908
  16. ATROVENT [Concomitant]
     Active Substance: IPRATROPIUM BROMIDE
  17. UMULINE [Concomitant]
     Active Substance: INSULIN HUMAN
  18. ROVAMYCINE [Suspect]
     Active Substance: SPIRAMYCIN
     Indication: LEGIONELLA INFECTION
     Dosage: 3 MIU, Q8H
     Route: 042
     Dates: start: 20180831, end: 20180908
  19. SUFENTANIL [Suspect]
     Active Substance: SUFENTANIL
     Indication: SEDATION
     Route: 042
     Dates: start: 20180827, end: 20180908

REACTIONS (1)
  - Rash morbilliform [Not Recovered/Not Resolved]

NARRATIVE: CASE EVENT DATE: 20180904
